FAERS Safety Report 6006809-5 (Version None)
Quarter: 2008Q4

REPORT INFORMATION
  Report Type: 
  Country: None (occurrence: None)
  Receive Date: 20081217
  Receipt Date: 20071016
  Transmission Date: 20090506
  Serious: No
  Sender: FDA-Public Use
  Company Number: US-ASTRAZENECA-2006UW18110

PATIENT
  Age: 75 Year
  Sex: Female
  Weight: 54.4 kg

DRUGS (7)
  1. CRESTOR [Suspect]
     Indication: BLOOD CHOLESTEROL INCREASED
     Route: 048
     Dates: start: 20060801
  2. ATENOLOL [Concomitant]
  3. URECHOLINE [Concomitant]
  4. UROQID [Concomitant]
  5. ASCORBIC ACID [Concomitant]
  6. CALCIUM [Concomitant]
  7. MULTI-VITAMINS [Concomitant]

REACTIONS (3)
  - ALOPECIA [None]
  - PRURITUS [None]
  - RASH ERYTHEMATOUS [None]
